FAERS Safety Report 16969806 (Version 1)
Quarter: 2019Q4

REPORT INFORMATION
  Report Type: Spontaneous
  Country: ES (occurrence: ES)
  Receive Date: 20191029
  Receipt Date: 20191029
  Transmission Date: 20200122
  Serious: Yes (Other)
  Sender: FDA-Public Use
  Company Number: ES-MYLANLABS-2019M1101731

PATIENT
  Age: 74 Year
  Sex: Female

DRUGS (9)
  1. ALPRAZOLAM. [Concomitant]
     Active Substance: ALPRAZOLAM
     Dosage: UNK
  2. PARACETAMOL [Concomitant]
     Active Substance: ACETAMINOPHEN
     Dosage: UNK
  3. SUMIAL [Concomitant]
     Active Substance: PROPRANOLOL HYDROCHLORIDE
     Dosage: UNK
  4. PANTOPRAZOL                        /01263201/ [Concomitant]
     Active Substance: PANTOPRAZOLE
     Dosage: UNK
  5. NITROGLICERINA + CAFE?NA [Concomitant]
     Dosage: UNK
  6. ACETILSALICILICO ACIDO [Concomitant]
     Active Substance: ASPIRIN
     Dosage: UNK
  7. TORASEMIDA [Concomitant]
     Active Substance: TORSEMIDE
  8. CIANOCOBALAMINA [Concomitant]
     Dosage: 1 MG INYECTABLE 2 ML
  9. ATORVASTATIN [Suspect]
     Active Substance: ATORVASTATIN
     Indication: ANGINA PECTORIS
     Dosage: 20 MILLIGRAM, QD
     Route: 048
     Dates: start: 20180619

REACTIONS (1)
  - Gynaecomastia [Recovering/Resolving]

NARRATIVE: CASE EVENT DATE: 20180622
